FAERS Safety Report 4692127-4 (Version None)
Quarter: 2005Q2

REPORT INFORMATION
  Report Type: 
  Country: None (occurrence: None)
  Receive Date: 20050614
  Receipt Date: 20050601
  Transmission Date: 20051028
  Serious: Yes (Other)
  Sender: FDA-Public Use
  Company Number: 2005056632

PATIENT
  Age: 62 Year
  Sex: Male
  Weight: 122.4712 kg

DRUGS (4)
  1. CELEBREX [Suspect]
     Indication: ARTHROPATHY
     Dosage: 200 MG (200 MG 1 IN 1 D) ORAL
     Route: 048
     Dates: start: 20040101
  2. LOPID [Concomitant]
  3. HYTRIN [Concomitant]
  4. NORVASC [Concomitant]

REACTIONS (2)
  - PLANTAR FASCIITIS [None]
  - TREATMENT NONCOMPLIANCE [None]
